FAERS Safety Report 8547608-X (Version None)
Quarter: 2012Q3

REPORT INFORMATION
  Report Type: 
  Country: None (occurrence: None)
  Receive Date: 20120727
  Receipt Date: 20120319
  Transmission Date: 20120928
  Serious: Yes (Other)
  Sender: FDA-Public Use
  Company Number: US-ASTRAZENECA-2012SE18575

PATIENT
  Sex: Female

DRUGS (2)
  1. SEROQUEL [Suspect]
     Route: 048
  2. LYRICA [Suspect]
     Route: 065

REACTIONS (2)
  - WRONG DRUG ADMINISTERED [None]
  - CARDIAC FAILURE CONGESTIVE [None]
